FAERS Safety Report 17264782 (Version 2)
Quarter: 2020Q2

REPORT INFORMATION
  Report Type: Spontaneous
  Country: US (occurrence: US)
  Receive Date: 20200113
  Receipt Date: 20200408
  Transmission Date: 20200713
  Serious: No
  Sender: FDA-Public Use
  Company Number: US-STEMLINE THERAPEUTICS, INC.-2019ST000263

PATIENT
  Age: 69 Year
  Sex: Male
  Weight: 86.26 kg

DRUGS (16)
  1. ELZONRIS [Suspect]
     Active Substance: TAGRAXOFUSP-ERZS
     Route: 042
     Dates: start: 201912, end: 20200102
  2. METFORMIN [Concomitant]
     Active Substance: METFORMIN HYDROCHLORIDE
     Indication: PRODUCT USED FOR UNKNOWN INDICATION
  3. DOXAZOSIN [Concomitant]
     Active Substance: DOXAZOSIN MESYLATE
     Indication: PRODUCT USED FOR UNKNOWN INDICATION
  4. PIOGLITAZONE. [Concomitant]
     Active Substance: PIOGLITAZONE
     Indication: PRODUCT USED FOR UNKNOWN INDICATION
  5. CLOPIDOGREL [Concomitant]
     Active Substance: CLOPIDOGREL BISULFATE
     Indication: PRODUCT USED FOR UNKNOWN INDICATION
  6. ELZONRIS [Suspect]
     Active Substance: TAGRAXOFUSP-ERZS
     Route: 042
     Dates: start: 20191202, end: 20191209
  7. SITAGLIPTIN [Concomitant]
     Active Substance: SITAGLIPTIN
     Indication: PRODUCT USED FOR UNKNOWN INDICATION
  8. VITAMIN D3 [Concomitant]
     Active Substance: CHOLECALCIFEROL
     Indication: PRODUCT USED FOR UNKNOWN INDICATION
  9. ELZONRIS [Suspect]
     Active Substance: TAGRAXOFUSP-ERZS
     Indication: BLASTIC PLASMACYTOID DENDRITIC CELL NEOPLASIA
     Route: 042
     Dates: start: 201910, end: 201910
  10. ASPIRIN. [Concomitant]
     Active Substance: ASPIRIN
     Indication: PRODUCT USED FOR UNKNOWN INDICATION
  11. LISINOPRIL. [Concomitant]
     Active Substance: LISINOPRIL
     Indication: PRODUCT USED FOR UNKNOWN INDICATION
  12. CARVEDILOL. [Concomitant]
     Active Substance: CARVEDILOL
     Indication: PRODUCT USED FOR UNKNOWN INDICATION
  13. GLIPIZIDE. [Concomitant]
     Active Substance: GLIPIZIDE
     Indication: PRODUCT USED FOR UNKNOWN INDICATION
  14. ELZONRIS [Suspect]
     Active Substance: TAGRAXOFUSP-ERZS
     Route: 042
     Dates: start: 20191104, end: 20191111
  15. SIMVASTATIN. [Concomitant]
     Active Substance: SIMVASTATIN
     Indication: PRODUCT USED FOR UNKNOWN INDICATION
  16. ALBUMIN [Concomitant]
     Active Substance: ALBUMIN HUMAN
     Indication: PROTEIN TOTAL DECREASED
     Dates: start: 20191227

REACTIONS (4)
  - Lacrimation increased [Recovering/Resolving]
  - Sneezing [Recovering/Resolving]
  - Rhinorrhoea [Recovering/Resolving]
  - Protein total decreased [Recovering/Resolving]

NARRATIVE: CASE EVENT DATE: 201911
